FAERS Safety Report 5883297-0 (Version None)
Quarter: 2008Q3

REPORT INFORMATION
  Report Type: 
  Country: None (occurrence: None)
  Receive Date: 20080915
  Receipt Date: 20080902
  Transmission Date: 20090109
  Serious: Yes (Hospitalization)
  Sender: FDA-Public Use
  Company Number: KR-BRISTOL-MYERS SQUIBB COMPANY-14289706

PATIENT
  Age: 57 Year
  Sex: Female
  Weight: 50 kg

DRUGS (8)
  1. METFORMIN HCL [Suspect]
     Indication: DIABETES MELLITUS
     Route: 048
     Dates: start: 20080430, end: 20080717
  2. BLINDED: LIRAGLUTIDE [Suspect]
     Indication: DIABETES MELLITUS
     Dates: start: 20080527, end: 20080717
  3. BLINDED: GLIMEPIRIDE [Suspect]
     Indication: DIABETES MELLITUS
     Route: 048
     Dates: start: 20080520, end: 20080717
  4. BLINDED: PLACEBO [Suspect]
     Indication: DIABETES MELLITUS
     Dosage: LIRAGLTIDE ARM:27MAY07-17JUL08;GLIMPERIDE ARM:20MAY08-17JUL08;PO
     Dates: start: 20080501, end: 20080717
  5. BERAPROST SODIUM [Concomitant]
  6. TIBOLONE [Concomitant]
  7. AMOXICILLIN [Concomitant]
  8. STREPTOKINASE [Concomitant]

REACTIONS (1)
  - DIARRHOEA [None]
